FAERS Safety Report 24196087 (Version 1)
Quarter: 2024Q3

REPORT INFORMATION
  Report Type: Report from Study
  Country: GB (occurrence: GB)
  Receive Date: 20240809
  Receipt Date: 20240809
  Transmission Date: 20241017
  Serious: Yes (Death)
  Sender: TEVA
  Company Number: GB-TEVA-VS-3229381

PATIENT
  Age: 53 Year
  Sex: Female

DRUGS (1)
  1. AJOVY [Suspect]
     Active Substance: FREMANEZUMAB-VFRM
     Indication: Product used for unknown indication
     Dosage: ROUTE: INJECTION/ STRENGTH:  225MG/1.5ML
     Route: 065

REACTIONS (1)
  - Death [Fatal]
